FAERS Safety Report 11716315 (Version 2)
Quarter: 2015Q4

REPORT INFORMATION
  Report Type: Spontaneous
  Country: US (occurrence: US)
  Receive Date: 20151104
  Receipt Date: 20151110
  Transmission Date: 20160304
  Serious: No
  Sender: FDA-Public Use
  Company Number: US-ELI_LILLY_AND_COMPANY-US201101003772

PATIENT
  Age: 72 Year
  Sex: Female

DRUGS (5)
  1. FORTEO [Suspect]
     Active Substance: TERIPARATIDE
     Indication: OSTEOPOROSIS
     Dosage: UNK, UNKNOWN
     Route: 065
  2. CALTRATE                           /00944201/ [Concomitant]
  3. FORTEO [Suspect]
     Active Substance: TERIPARATIDE
     Dosage: UNK, UNKNOWN
     Route: 065
  4. FORTEO [Suspect]
     Active Substance: TERIPARATIDE
     Dosage: UNK, UNKNOWN
     Route: 065
  5. FORTEO [Suspect]
     Active Substance: TERIPARATIDE
     Dosage: UNK, UNKNOWN

REACTIONS (22)
  - Pelvic pain [Not Recovered/Not Resolved]
  - Headache [Recovering/Resolving]
  - Skin disorder [Unknown]
  - Vitamin D increased [Unknown]
  - Fatigue [Unknown]
  - Rhinorrhoea [Unknown]
  - Bone disorder [Unknown]
  - Injection site discomfort [Recovered/Resolved]
  - Nausea [Not Recovered/Not Resolved]
  - Muscular weakness [Unknown]
  - Cough [Unknown]
  - Injection site extravasation [Unknown]
  - Injection site erythema [Unknown]
  - Limb discomfort [Unknown]
  - Pain in extremity [Unknown]
  - Renal disorder [Unknown]
  - Musculoskeletal disorder [Unknown]
  - Injection site bruising [Unknown]
  - Pain in extremity [Not Recovered/Not Resolved]
  - Dry eye [Unknown]
  - Ocular discomfort [Unknown]
  - Sensory disturbance [Unknown]
